FAERS Safety Report 5776314-X (Version None)
Quarter: 2008Q2

REPORT INFORMATION
  Report Type: 
  Country: None (occurrence: None)
  Receive Date: 20080617
  Receipt Date: 20080617
  Transmission Date: 20081010
  Serious: Yes (Life-Threatening, Hospitalization, Disabling, Other)
  Sender: FDA-Public Use
  Company Number: None

PATIENT
  Age: 53 Year
  Sex: Male
  Weight: 102.0593 kg

DRUGS (1)
  1. DIGOXIN [Suspect]
     Indication: ARRHYTHMIA
     Dosage: 1 TABLET DAILY 047
     Route: 048
     Dates: end: 20080311

REACTIONS (4)
  - CONVULSION [None]
  - ECONOMIC PROBLEM [None]
  - INCORRECT DOSE ADMINISTERED [None]
  - JOINT INJURY [None]
